FAERS Safety Report 18023572 (Version 2)
Quarter: 2020Q3

REPORT INFORMATION
  Report Type: Spontaneous
  Country: CA (occurrence: CA)
  Receive Date: 20200714
  Receipt Date: 20200728
  Transmission Date: 20201103
  Serious: Yes (Hospitalization)
  Sender: FDA-Public Use
  Company Number: CA-ACTELION-A-NJ2020-206943

PATIENT
  Age: 59 Year
  Sex: Female
  Weight: 97.51 kg

DRUGS (11)
  1. NITROGLYCERINE [Concomitant]
     Active Substance: NITROGLYCERIN
  2. ONEALFA [Concomitant]
     Active Substance: ALFACALCIDOL
  3. OPSUMIT [Suspect]
     Active Substance: MACITENTAN
     Indication: PULMONARY ARTERIAL HYPERTENSION
     Dosage: 10 MG
     Route: 048
     Dates: start: 20200220
  4. ASA [Concomitant]
     Active Substance: ASPIRIN
  5. FUROSEMIDE. [Concomitant]
     Active Substance: FUROSEMIDE
  6. FELODIPINE. [Concomitant]
     Active Substance: FELODIPINE
  7. METFORMIN [Concomitant]
     Active Substance: METFORMIN HYDROCHLORIDE
     Indication: ESSENTIAL HYPERTENSION
  8. ZAROXOLYN [Concomitant]
     Active Substance: METOLAZONE
  9. ROSUVASTATIN. [Concomitant]
     Active Substance: ROSUVASTATIN
  10. TRANDATE [Concomitant]
     Active Substance: LABETALOL HYDROCHLORIDE
  11. OXYGEN. [Concomitant]
     Active Substance: OXYGEN

REACTIONS (2)
  - Fluid retention [Not Recovered/Not Resolved]
  - Renal disorder [Not Recovered/Not Resolved]

NARRATIVE: CASE EVENT DATE: 20200630
